FAERS Safety Report 13621674 (Version 1)
Quarter: 2017Q2

REPORT INFORMATION
  Report Type: Spontaneous
  Country: US (occurrence: US)
  Receive Date: 20170607
  Receipt Date: 20170607
  Transmission Date: 20170830
  Serious: No
  Sender: FDA-Public Use
  Company Number: US-ROCHE-1827534

PATIENT
  Sex: Female

DRUGS (8)
  1. CELEXA [Concomitant]
     Active Substance: CITALOPRAM HYDROBROMIDE
     Indication: ANXIETY
     Dosage: FOR ONE TIME
     Route: 065
     Dates: start: 20160421
  2. OXYCODONE [Concomitant]
     Active Substance: OXYCODONE
     Dosage: AS NEEDED
     Route: 065
  3. METHOTREXATE. [Concomitant]
     Active Substance: METHOTREXATE
     Dosage: 10 PEER WEEK
     Route: 065
  4. TRAMADOL. [Concomitant]
     Active Substance: TRAMADOL
     Route: 065
  5. KLONOPIN [Suspect]
     Active Substance: CLONAZEPAM
     Indication: ANXIETY
     Route: 065
     Dates: start: 20160421
  6. XELJANZ [Concomitant]
     Active Substance: TOFACITINIB CITRATE
     Indication: RHEUMATOID ARTHRITIS
     Route: 065
     Dates: start: 201602
  7. MELOXICAM. [Concomitant]
     Active Substance: MELOXICAM
     Route: 065
  8. MS CONTIN [Concomitant]
     Active Substance: MORPHINE SULFATE
     Route: 065

REACTIONS (2)
  - Gastric disorder [Recovered/Resolved]
  - Enteritis infectious [Recovered/Resolved]
